FAERS Safety Report 23440505 (Version 1)
Quarter: 2024Q1

REPORT INFORMATION
  Report Type: Spontaneous
  Country: US (occurrence: US)
  Receive Date: 20240125
  Receipt Date: 20240125
  Transmission Date: 20240410
  Serious: No
  Sender: FDA-Public Use
  Company Number: US-SA-SAC20240122001259

PATIENT
  Sex: Female
  Weight: 68 kg

DRUGS (16)
  1. DUPIXENT [Suspect]
     Active Substance: DUPILUMAB
     Indication: Dermatitis atopic
     Dosage: 300 MG, QOW
     Route: 058
     Dates: start: 2019
  2. LISINOPRIL [Concomitant]
     Active Substance: LISINOPRIL
  3. NIFEDIPINE [Concomitant]
     Active Substance: NIFEDIPINE
     Dosage: EXTENDED-RELEASE TABLET
  4. LEVOTHYROXINE SODIUM [Concomitant]
     Active Substance: LEVOTHYROXINE SODIUM
     Dosage: UNK
  5. CYCLOBENZAPRINE HYDROCHLORIDE [Concomitant]
     Active Substance: CYCLOBENZAPRINE HYDROCHLORIDE
  6. ALBUTEROL SULFATE [Concomitant]
     Active Substance: ALBUTEROL SULFATE
     Dosage: UNK
  7. STOOL SOFTENER (DOCUSATE) [Concomitant]
     Active Substance: DOCUSATE
     Dosage: UNK
  8. ACETAMINOPHEN\HYDROCODONE [Concomitant]
     Active Substance: ACETAMINOPHEN\HYDROCODONE
  9. TRELEGY ELLIPTA [Concomitant]
     Active Substance: FLUTICASONE FUROATE\UMECLIDINIUM BROMIDE\VILANTEROL TRIFENATATE
     Dosage: TRELEGY ELLIPTA 100-62.5 BLST W/DEV
  10. ATORVASTATIN CALCIUM [Concomitant]
     Active Substance: ATORVASTATIN CALCIUM
  11. OMEPRAZOLE [Concomitant]
     Active Substance: OMEPRAZOLE
  12. GABAPENTIN [Concomitant]
     Active Substance: GABAPENTIN
  13. DULOXETINE HYDROCHLORIDE [Concomitant]
     Active Substance: DULOXETINE HYDROCHLORIDE
  14. ESTRACE [Concomitant]
     Active Substance: ESTRADIOL
  15. MELOXICAM [Concomitant]
     Active Substance: MELOXICAM
  16. GARLIC [Concomitant]
     Active Substance: GARLIC

REACTIONS (1)
  - Injection site bruising [Unknown]
